FAERS Safety Report 22661819 (Version 7)
Quarter: 2023Q4

REPORT INFORMATION
  Report Type: Report from Study
  Country: US (occurrence: US)
  Receive Date: 20230630
  Receipt Date: 20231212
  Transmission Date: 20240110
  Serious: Yes (Other)
  Sender: FDA-Public Use
  Company Number: US-AKCEA THERAPEUTICS, INC.-2023IS001729

PATIENT

DRUGS (1)
  1. TEGSEDI [Suspect]
     Active Substance: INOTERSEN SODIUM
     Indication: Hereditary neuropathic amyloidosis
     Dosage: 284 MILLIGRAM, QW
     Route: 058
     Dates: start: 20220711

REACTIONS (14)
  - Urine protein/creatinine ratio increased [Unknown]
  - Blood creatinine increased [Unknown]
  - Glomerular filtration rate decreased [Unknown]
  - Protein urine present [Unknown]
  - Urine abnormality [Unknown]
  - Glucose urine present [Unknown]
  - Bacterial test positive [Unknown]
  - Urinary occult blood positive [Unknown]
  - Urinary casts present [Unknown]
  - Red blood cells urine positive [Unknown]
  - Fungal test positive [Unknown]
  - Platelet count increased [Unknown]
  - Glomerulonephritis [Unknown]
  - Chronic kidney disease [Unknown]

NARRATIVE: CASE EVENT DATE: 20230612
